FAERS Safety Report 7023829-2 (Version None)
Quarter: 2010Q4

REPORT INFORMATION
  Report Type: 
  Country: None (occurrence: None)
  Receive Date: 20101001
  Receipt Date: 20100914
  Transmission Date: 20110411
  Serious: Yes (Hospitalization)
  Sender: FDA-Public Use
  Company Number: FR-JNJFOC-20100808990

PATIENT
  Age: 65 Year
  Sex: Male

DRUGS (5)
  1. IXPRIM [Suspect]
     Indication: PROCEDURAL PAIN
     Route: 048
  2. ANAESTHETICS [Suspect]
     Indication: SURGERY
     Route: 065
  3. NOZINAN [Concomitant]
  4. MOPRAL [Concomitant]
  5. VOLTAREN [Concomitant]

REACTIONS (6)
  - ABDOMINAL DISCOMFORT [None]
  - DIARRHOEA [None]
  - INCONTINENCE [None]
  - INSOMNIA [None]
  - OEDEMA PERIPHERAL [None]
  - URINARY RETENTION [None]
